FAERS Safety Report 8950291 (Version 1)
Quarter: 2012Q4

REPORT INFORMATION
  Report Type: 
  Country: US (occurrence: US)
  Receive Date: 20121205
  Receipt Date: 20121205
  Transmission Date: 20130627
  Serious: No
  Sender: FDA-Public Use
  Company Number: US-ASTRAZENECA-2012SE87860

PATIENT
  Sex: Female
  Weight: 93.9 kg

DRUGS (3)
  1. ZESTRIL [Suspect]
     Indication: HYPERTENSION
     Route: 048
  2. ADVAIR [Concomitant]
     Indication: ASTHMA
  3. ASPIRIN [Concomitant]
     Indication: PROPHYLAXIS

REACTIONS (4)
  - Heart rate increased [Unknown]
  - Blood pressure increased [Unknown]
  - Drug intolerance [Unknown]
  - Drug ineffective [Unknown]
